FAERS Safety Report 11433664 (Version 2)
Quarter: 2015Q3

REPORT INFORMATION
  Report Type: Spontaneous
  Country: US (occurrence: US)
  Receive Date: 20150831
  Receipt Date: 20150908
  Transmission Date: 20151125
  Serious: No
  Sender: FDA-Public Use
  Company Number: US-ASTRAZENECA-2015SE81265

PATIENT
  Age: 21175 Day
  Sex: Female
  Weight: 80.7 kg

DRUGS (10)
  1. BYDUREON [Suspect]
     Active Substance: EXENATIDE
     Indication: TYPE 2 DIABETES MELLITUS
     Route: 058
     Dates: start: 2014
  2. BLOOD PRESSURE MEDICATIONS [Suspect]
     Active Substance: UNSPECIFIED INGREDIENT
     Route: 065
  3. PROZAC [Concomitant]
     Active Substance: FLUOXETINE HYDROCHLORIDE
  4. LISINOPRIL. [Suspect]
     Active Substance: LISINOPRIL
     Route: 048
  5. ASPIRIN. [Concomitant]
     Active Substance: ASPIRIN
  6. VITAMIN D [Concomitant]
     Active Substance: CHOLECALCIFEROL
     Dosage: 1000
  7. AMLODIPINE [Concomitant]
     Active Substance: AMLODIPINE BESYLATE
  8. METFORMIN [Concomitant]
     Active Substance: METFORMIN HYDROCHLORIDE
     Dosage: TWO TIMES A DAY
  9. NEUROTIN [Concomitant]
     Active Substance: GABAPENTIN
  10. LANTUS [Concomitant]
     Active Substance: INSULIN GLARGINE

REACTIONS (8)
  - Weight decreased [Unknown]
  - Increased appetite [Unknown]
  - Hypotension [Unknown]
  - Feeling abnormal [Unknown]
  - Underdose [Unknown]
  - Product quality issue [Unknown]
  - Eye disorder [Not Recovered/Not Resolved]
  - Dizziness [Unknown]

NARRATIVE: CASE EVENT DATE: 20150805
